FAERS Safety Report 26210601 (Version 1)
Quarter: 2025Q4

REPORT INFORMATION
  Report Type: Spontaneous
  Country: CA (occurrence: CA)
  Receive Date: 20251230
  Receipt Date: 20251230
  Transmission Date: 20260117
  Serious: Yes (Hospitalization)
  Sender: ACCORD
  Company Number: None

PATIENT
  Age: 73 Year
  Sex: Female
  Weight: 71 kg

DRUGS (16)
  1. CARBOPLATIN [Suspect]
     Active Substance: CARBOPLATIN
     Indication: Triple negative breast cancer
  2. PACLITAXEL [Suspect]
     Active Substance: PACLITAXEL
     Indication: Triple negative breast cancer
     Dosage: DOSE: 80 MG/M SQ.
  3. PEMBROLIZUMAB [Suspect]
     Active Substance: PEMBROLIZUMAB
     Indication: Triple negative breast cancer
  4. ACETAMINOPHEN [Concomitant]
     Active Substance: ACETAMINOPHEN
     Indication: Headache
  5. BENADRYL [Concomitant]
     Active Substance: DIPHENHYDRAMINE HYDROCHLORIDE
     Indication: Rhinitis allergic
  6. CELEBREX [Concomitant]
     Active Substance: CELECOXIB
     Indication: Osteoarthritis
  7. DESONIDE [Concomitant]
     Active Substance: DESONIDE
     Indication: Eczema
     Dosage: TOPICAL, DOSE: 0.05%
  8. MOMETASONE FUROATE [Concomitant]
     Active Substance: MOMETASONE FUROATE
     Indication: Psoriasis
     Dosage: DOSE 0.01%, TOPICAL
  9. PANTOPRAZOLE [Concomitant]
     Active Substance: PANTOPRAZOLE
     Indication: Stomach dilation procedure
  10. PRAVASTATIN [Concomitant]
     Active Substance: PRAVASTATIN
     Indication: Dyslipidaemia
  11. QUETIAPINE [Concomitant]
     Active Substance: QUETIAPINE
     Indication: Insomnia
  12. EVOLOCUMAB [Concomitant]
     Active Substance: EVOLOCUMAB
     Indication: Dyslipidaemia
  13. SYNTHROID [Concomitant]
     Active Substance: LEVOTHYROXINE SODIUM
     Indication: Hypothyroidism
     Dosage: 1 EVERY 1 DAY
     Route: 065
  14. VITAMIN D3 [Concomitant]
     Active Substance: CHOLECALCIFEROL
     Indication: General physical health deterioration
  15. PRAVASTATIN [Concomitant]
     Active Substance: PRAVASTATIN
     Indication: Dyslipidaemia
     Dosage: 1 EVERY 1 DAY
  16. SYNTHROID [Concomitant]
     Active Substance: LEVOTHYROXINE SODIUM
     Indication: Hypothyroidism
     Route: 065

REACTIONS (1)
  - Immune-mediated hepatitis [Recovered/Resolved]
